FAERS Safety Report 26182583 (Version 1)
Quarter: 2025Q4

REPORT INFORMATION
  Report Type: Spontaneous
  Country: US (occurrence: US)
  Receive Date: 20251221
  Receipt Date: 20251221
  Transmission Date: 20260117
  Serious: No
  Sender: SANOFI AVENTIS
  Company Number: US-SA-2025SA377572

PATIENT
  Age: 62 Year
  Sex: Female

DRUGS (1)
  1. DUPIXENT [Suspect]
     Active Substance: DUPILUMAB
     Indication: Chronic obstructive pulmonary disease
     Dosage: 300 MG, QOW
     Route: 058

REACTIONS (9)
  - Nasal cavity mass [Unknown]
  - Tenderness [Unknown]
  - Productive cough [Unknown]
  - Condition aggravated [Unknown]
  - Rhinorrhoea [Unknown]
  - Epistaxis [Unknown]
  - Chromaturia [Unknown]
  - Joint stiffness [Unknown]
  - Anal incontinence [Unknown]
